FAERS Safety Report 4488950-1 (Version None)
Quarter: 2004Q4

REPORT INFORMATION
  Report Type: 
  Country: None (occurrence: None)
  Receive Date: 20041029
  Receipt Date: 20041018
  Transmission Date: 20050328
  Serious: Yes (Life-Threatening, Hospitalization)
  Sender: FDA-Public Use
  Company Number: 200420324GDDC

PATIENT
  Age: 43 Year
  Sex: Female
  Weight: 55 kg

DRUGS (2)
  1. TELFAST [Suspect]
     Route: 048
     Dates: start: 20040817, end: 20040824
  2. VITAMIN C [Concomitant]

REACTIONS (4)
  - BASILAR ARTERY STENOSIS [None]
  - CEREBROVASCULAR ACCIDENT [None]
  - EMBOLISM [None]
  - LIPIDS DECREASED [None]
